FAERS Safety Report 6110291-7 (Version None)
Quarter: 2009Q1

REPORT INFORMATION
  Report Type: 
  Country: None (occurrence: None)
  Receive Date: 20090310
  Receipt Date: 20090302
  Transmission Date: 20090719
  Serious: Yes (Hospitalization)
  Sender: FDA-Public Use
  Company Number: AT-ASTRAZENECA-2009PK00726

PATIENT
  Age: 82 Year
  Sex: Female
  Weight: 83 kg

DRUGS (13)
  1. ATACAND [Suspect]
     Indication: CARDIAC FAILURE
     Route: 048
  2. HALCION [Suspect]
     Route: 048
  3. DANCOR [Concomitant]
  4. FOSICOMB [Concomitant]
     Route: 048
  5. LASIX [Concomitant]
  6. MIRTABENE [Concomitant]
     Route: 048
  7. NEURONTIN [Concomitant]
     Route: 048
  8. NOMEXOR [Concomitant]
  9. PANTOPRAZOLE SODIUM [Concomitant]
  10. SINTROM [Concomitant]
     Route: 048
  11. THYREX [Concomitant]
  12. TRAMABENE [Concomitant]
     Route: 048
  13. SIMVASTATIN [Concomitant]

REACTIONS (3)
  - FALL [None]
  - HYPOTENSION [None]
  - VERTIGO [None]
